FAERS Safety Report 9592367 (Version 1)
Quarter: 2013Q3

REPORT INFORMATION
  Report Type: Spontaneous
  Country: US (occurrence: None)
  Receive Date: 20130930
  Receipt Date: 20130930
  Transmission Date: 20140515
  Serious: Yes (Other)
  Sender: FDA-Public Use
  Company Number: 1000047291

PATIENT
  Sex: Female

DRUGS (1)
  1. LINZESS (LINACLOTIDE) (CAPSULES) [Suspect]
     Route: 048
     Dates: start: 201307, end: 201307

REACTIONS (1)
  - Diarrhoea [None]
